FAERS Safety Report 12231713 (Version 2)
Quarter: 2016Q2

REPORT INFORMATION
  Report Type: Report from Study
  Country: CO (occurrence: CO)
  Receive Date: 20160401
  Receipt Date: 20160630
  Transmission Date: 20160815
  Serious: Yes (Other)
  Sender: FDA-Public Use
  Company Number: PHHY2015CO148066

PATIENT
  Sex: Female
  Weight: 75 kg

DRUGS (5)
  1. AFINITOR [Suspect]
     Active Substance: EVEROLIMUS
     Indication: BREAST CANCER METASTATIC
     Dosage: 10 MG, QD
     Route: 048
     Dates: start: 20141217
  2. METOPROLOL. [Concomitant]
     Active Substance: METOPROLOL
     Indication: HYPERTENSION
     Dosage: 50 MG, BID
     Route: 065
  3. EXEMESTANE. [Concomitant]
     Active Substance: EXEMESTANE
     Indication: PRODUCT USED FOR UNKNOWN INDICATION
     Dosage: 5 MG, QD
     Route: 065
  4. CLONIDINA [Concomitant]
     Indication: HYPERTENSION
     Dosage: 50 MG, BID
     Route: 065
  5. AFINITOR [Suspect]
     Active Substance: EVEROLIMUS
     Indication: RENAL CANCER

REACTIONS (6)
  - Oral mucosal exfoliation [Unknown]
  - Feeling abnormal [Unknown]
  - Breast mass [Unknown]
  - Toothache [Unknown]
  - Bone pain [Unknown]
  - Headache [Unknown]
